FAERS Safety Report 9180260 (Version 1)
Quarter: 2013Q1

REPORT INFORMATION
  Report Type: Report from Study
  Country: US (occurrence: US)
  Receive Date: 20130322
  Receipt Date: 20130322
  Transmission Date: 20140127
  Serious: Yes (Hospitalization)
  Sender: FDA-Public Use
  Company Number: US-009507513-1303USA009232

PATIENT
  Age: 4 Year
  Sex: Male
  Weight: 15.4 kg

DRUGS (3)
  1. VORINOSTAT [Suspect]
     Indication: BRAIN STEM GLIOMA
     Dosage: UNK
     Dates: start: 20130101, end: 20130209
  2. VORINOSTAT [Suspect]
     Dosage: UNK
     Dates: start: 20130219, end: 20130314
  3. DEXAMETHASONE [Concomitant]

REACTIONS (2)
  - Lung infection [Recovering/Resolving]
  - Hypoxia [Recovering/Resolving]
